FAERS Safety Report 24918321 (Version 1)
Quarter: 2025Q1

REPORT INFORMATION
  Report Type: Report from Study
  Country: US (occurrence: US)
  Receive Date: 20250203
  Receipt Date: 20250203
  Transmission Date: 20250409
  Serious: Yes (Death)
  Sender: OTSUKA
  Company Number: US-OTSUKA-2025_002537

PATIENT
  Sex: Female

DRUGS (2)
  1. TOLVAPTAN [Suspect]
     Active Substance: TOLVAPTAN
     Indication: Hyponatraemia
     Dosage: 0.5 DF, QD (15 MG HALD TABLET ONCE A DAY)
     Route: 048
  2. TOLVAPTAN [Suspect]
     Active Substance: TOLVAPTAN
     Indication: Blood osmolarity decreased

REACTIONS (3)
  - Death [Fatal]
  - Wrong technique in product usage process [Unknown]
  - Product use in unapproved indication [Unknown]
